FAERS Safety Report 8280998-4 (Version None)
Quarter: 2012Q2

REPORT INFORMATION
  Report Type: 
  Country: None (occurrence: None)
  Receive Date: 20120412
  Receipt Date: 20120406
  Transmission Date: 20120825
  Serious: Yes (Other)
  Sender: FDA-Public Use
  Company Number: ES-ABBOTT-12P-144-0922561-00

PATIENT
  Age: 57 Year
  Sex: Male

DRUGS (8)
  1. LOPINAVIR/RITONAVIR [Suspect]
     Indication: HIV INFECTION
  2. LAMIVUDINE [Concomitant]
     Indication: HIV INFECTION
  3. ABACAVIR [Concomitant]
     Indication: HIV INFECTION
  4. RITONAVIR [Suspect]
     Indication: HIV INFECTION
  5. ABACAVIR SULFATE/LAMIVUDINE [Concomitant]
     Indication: HIV INFECTION
  6. ATAZANAVIR [Suspect]
     Indication: HIV INFECTION
  7. DARUNAVIR [Concomitant]
     Indication: HIV INFECTION
  8. RALTEGRAVIR [Concomitant]
     Indication: HIV INFECTION

REACTIONS (2)
  - PATHOGEN RESISTANCE [None]
  - ENCEPHALITIS VIRAL [None]
